FAERS Safety Report 23194831 (Version 1)
Quarter: 2023Q4

REPORT INFORMATION
  Report Type: Spontaneous
  Country: PL (occurrence: PL)
  Receive Date: 20231117
  Receipt Date: 20231117
  Transmission Date: 20240109
  Serious: Yes (Hospitalization, Other)
  Sender: FDA-Public Use
  Company Number: PL-Accord-387655

PATIENT
  Age: 29 Year
  Sex: Male

DRUGS (10)
  1. SERTRALINE [Interacting]
     Active Substance: SERTRALINE HYDROCHLORIDE
     Indication: Depression
     Dosage: 100 MILLIGRAM, ONCE A DAY
     Route: 065
  2. ACETAMINOPHEN [Interacting]
     Active Substance: ACETAMINOPHEN
     Indication: Headache
     Dosage: 1000 MILLIGRAM, ONCE A DAY
     Route: 048
  3. NALTREXONE [Interacting]
     Active Substance: NALTREXONE
     Indication: Obesity
     Dosage: 1 DOSAGE FORM, ONCE A DAY (90 MG/8 MG FOR 2 WEEKS)
     Route: 065
  4. NALTREXONE [Interacting]
     Active Substance: NALTREXONE
     Dosage: 2 DOSAGE FORM, ONCE A DAY (90 MG/8 MG FOR 2 WEEKS)
     Route: 065
  5. BUPROPION [Interacting]
     Active Substance: BUPROPION
     Indication: Obesity
     Dosage: 1 DOSAGE FORM (90 MG/8 MG FOR 2 WEEKS)
     Route: 065
  6. BUPROPION [Interacting]
     Active Substance: BUPROPION
     Dosage: 2 DOSAGE FORM (90 MG/8 MG FOR 2 WEEKS)
     Route: 065
  7. SEMAGLUTIDE [Interacting]
     Active Substance: SEMAGLUTIDE
     Indication: Obesity
     Dosage: 0.25 MILLIGRAM, EVERY WEEK (FOR THE FIRST 2 WEEKS)
     Route: 058
  8. SEMAGLUTIDE [Interacting]
     Active Substance: SEMAGLUTIDE
     Dosage: 1 MILLIGRAM
     Route: 058
  9. OMEPRAZOLE [Interacting]
     Active Substance: OMEPRAZOLE
     Indication: Eructation
     Dosage: 40 MILLIGRAM, ONCE A DAY
     Route: 065
  10. OMEPRAZOLE [Interacting]
     Active Substance: OMEPRAZOLE
     Indication: Oesophageal pain

REACTIONS (3)
  - Oedematous pancreatitis [Recovered/Resolved]
  - Headache [Recovered/Resolved]
  - Drug interaction [Recovered/Resolved]
